FAERS Safety Report 5192805-7 (Version None)
Quarter: 2006Q4

REPORT INFORMATION
  Report Type: 
  Country: None (occurrence: None)
  Receive Date: 20061228
  Receipt Date: 20051104
  Transmission Date: 20070319
  Serious: No
  Sender: FDA-Public Use
  Company Number: US-GLAXOSMITHKLINE-A0580935A

PATIENT
  Age: 55 Year
  Sex: Female

DRUGS (5)
  1. FLONASE [Suspect]
     Dosage: 1SPR TWICE PER DAY
     Route: 045
     Dates: start: 20000101
  2. CLARITIN [Concomitant]
  3. SLO-BID [Concomitant]
  4. PULMICORT [Concomitant]
  5. SEREVENT [Concomitant]

REACTIONS (1)
  - EPISTAXIS [None]
